FAERS Safety Report 5377454-X (Version None)
Quarter: 2007Q3

REPORT INFORMATION
  Report Type: 
  Country: None (occurrence: None)
  Receive Date: 20070703
  Receipt Date: 20070622
  Transmission Date: 20080115
  Serious: Yes (Hospitalization)
  Sender: FDA-Public Use
  Company Number: GB-AMGEN-US228711

PATIENT
  Sex: Female
  Weight: 71.9 kg

DRUGS (4)
  1. ENBREL [Suspect]
     Indication: RHEUMATOID ARTHRITIS
     Route: 058
     Dates: start: 20040521
  2. ENBREL [Suspect]
     Dosage: UNKNOWN
     Dates: start: 20070308
  3. IBUPROFEN [Concomitant]
     Indication: ARTHRALGIA
     Dosage: 400MG, PRN
     Route: 048
  4. IBUPROFEN [Concomitant]
     Indication: INFLAMMATION

REACTIONS (2)
  - NEUTROPHIL COUNT DECREASED [None]
  - SURGERY [None]
